FAERS Safety Report 9589888 (Version 1)
Quarter: 2013Q4

REPORT INFORMATION
  Report Type: Spontaneous
  Country: US (occurrence: US)
  Receive Date: 20131003
  Receipt Date: 20131003
  Transmission Date: 20140711
  Serious: No
  Sender: FDA-Public Use
  Company Number: US-AMGEN-USASP2012073176

PATIENT
  Sex: Male

DRUGS (4)
  1. ENBREL [Suspect]
     Indication: PSORIASIS
     Dosage: 50 MG, QWK
     Route: 058
     Dates: start: 200901
  2. PROPECIA [Concomitant]
     Dosage: 1 MG, UNK
  3. PRAVASTATIN [Concomitant]
     Dosage: 80 MG, UNK
  4. WARFARIN [Concomitant]
     Dosage: 5 MG, UNK

REACTIONS (1)
  - Psoriasis [Unknown]
